FAERS Safety Report 4533058-X (Version None)
Quarter: 2004Q4

REPORT INFORMATION
  Report Type: 
  Country: None (occurrence: None)
  Receive Date: 20041221
  Receipt Date: 20041209
  Transmission Date: 20050328
  Serious: Yes (Hospitalization)
  Sender: FDA-Public Use
  Company Number: 200422159GDDC

PATIENT
  Age: 41 Year
  Sex: Female

DRUGS (1)
  1. CLOMID [Suspect]
     Indication: ANOVULATORY CYCLE
     Route: 048
     Dates: start: 20031201, end: 20040101

REACTIONS (4)
  - BREECH PRESENTATION [None]
  - CAESAREAN SECTION [None]
  - DRUG EXPOSURE DURING PREGNANCY [None]
  - METRORRHAGIA [None]
